FAERS Safety Report 8921191 (Version 1)
Quarter: 2012Q4

REPORT INFORMATION
  Report Type: 
  Country: BR (occurrence: BR)
  Receive Date: 20121121
  Receipt Date: 20121121
  Transmission Date: 20130627
  Serious: Yes (Hospitalization)
  Sender: FDA-Public Use
  Company Number: BR-ASTRAZENECA-2012SE86255

PATIENT
  Age: 577 Month
  Sex: Male
  Weight: 89 kg

DRUGS (6)
  1. NEXIUM [Suspect]
     Indication: GASTRITIS
     Route: 048
     Dates: start: 201111, end: 201210
  2. NEXIUM [Suspect]
     Indication: GASTRITIS
     Route: 048
  3. NEXIUM [Suspect]
     Indication: GASTRITIS
     Route: 048
  4. CRESTOR [Suspect]
     Indication: BLOOD CHOLESTEROL INCREASED
     Route: 048
     Dates: start: 2009, end: 201210
  5. CRESTOR [Suspect]
     Indication: BLOOD CHOLESTEROL INCREASED
     Route: 048
  6. MOTILIUM [Concomitant]
     Route: 048
     Dates: start: 201111

REACTIONS (4)
  - Myocardial infarction [Recovered/Resolved]
  - Gastritis [Not Recovered/Not Resolved]
  - Off label use [Not Recovered/Not Resolved]
  - Drug ineffective [Unknown]
